FAERS Safety Report 17237130 (Version 3)
Quarter: 2020Q2

REPORT INFORMATION
  Report Type: Spontaneous
  Country: US (occurrence: US)
  Receive Date: 20200106
  Receipt Date: 20200415
  Transmission Date: 20200713
  Serious: Yes (Other)
  Sender: FDA-Public Use
  Company Number: US-PFIZER INC-2015242412

PATIENT
  Age: 36 Year
  Sex: Male

DRUGS (3)
  1. DILANTIN [Suspect]
     Active Substance: PHENYTOIN
     Dosage: 100 MG, UNK, (100 MG 3 A DAY ALTERNATING WITH 4 A DAY EVERY OTHER DAY/3 PO QD ALTERNATE WITH 4 PO Q)
     Route: 048
  2. DILANTIN [Suspect]
     Active Substance: PHENYTOIN
     Dosage: 100 MG, 1X/DAY (SIG: 4 PO HS)
     Route: 048
  3. DILANTIN [Suspect]
     Active Substance: PHENYTOIN
     Dosage: 400 MG, DAILY(100 MG PHENYTOIN SODIUM-4 A DAY)
     Route: 048

REACTIONS (4)
  - Memory impairment [Unknown]
  - Seizure [Not Recovered/Not Resolved]
  - Product dispensing error [Unknown]
  - Mental disorder [Unknown]
